FAERS Safety Report 9283977 (Version 4)
Quarter: 2014Q1

REPORT INFORMATION
  Report Type: Spontaneous
  Country: US (occurrence: US)
  Receive Date: 20130510
  Receipt Date: 20140210
  Transmission Date: 20141002
  Serious: Yes (Hospitalization, Other)
  Sender: FDA-Public Use
  Company Number: US-PFIZER INC-2013144449

PATIENT
  Age: 77 Year
  Sex: Female
  Weight: 60.77 kg

DRUGS (2)
  1. LYRICA [Suspect]
     Indication: HEADACHE
     Dosage: 100 MG, 2X/DAY
     Route: 048
  2. LYRICA [Suspect]
     Indication: FIBROMYALGIA

REACTIONS (12)
  - Urinary tract infection [Unknown]
  - Arthropathy [Unknown]
  - Body height decreased [Unknown]
  - Local swelling [Unknown]
  - Pruritus [Unknown]
  - Nausea [Unknown]
  - Vomiting [Not Recovered/Not Resolved]
  - Diarrhoea [Not Recovered/Not Resolved]
  - Chromaturia [Unknown]
  - Faeces discoloured [Unknown]
  - Off label use [Unknown]
  - Malaise [Unknown]
